FAERS Safety Report 5865222-1 (Version None)
Quarter: 2008Q3

REPORT INFORMATION
  Report Type: 
  Country: None (occurrence: None)
  Receive Date: 20080829
  Receipt Date: 20080823
  Transmission Date: 20090109
  Serious: No
  Sender: FDA-Public Use
  Company Number: B0534196A

PATIENT
  Age: 10 Year
  Sex: Female

DRUGS (1)
  1. ALTARGO [Suspect]
     Indication: IMPETIGO
     Route: 065

REACTIONS (3)
  - DERMATITIS ALLERGIC [None]
  - FEELING ABNORMAL [None]
  - RASH PRURITIC [None]
